FAERS Safety Report 5833038-8 (Version None)
Quarter: 2008Q3

REPORT INFORMATION
  Report Type: 
  Country: None (occurrence: None)
  Receive Date: 20080805
  Receipt Date: 20080718
  Transmission Date: 20090109
  Serious: Yes (Hospitalization)
  Sender: FDA-Public Use
  Company Number: JP-ASTRAZENECA-2008AP03317

PATIENT
  Age: 20311 Day
  Sex: Female

DRUGS (2)
  1. IRESSA [Suspect]
     Indication: LUNG NEOPLASM MALIGNANT
     Route: 048
     Dates: start: 20060531
  2. IRESSA [Suspect]
     Route: 048
     Dates: end: 20080410

REACTIONS (1)
  - RHABDOMYOLYSIS [None]
